FAERS Safety Report 4900144-1 (Version None)
Quarter: 2006Q1

REPORT INFORMATION
  Report Type: 
  Country: None (occurrence: None)
  Receive Date: 20060201
  Receipt Date: 20050124
  Transmission Date: 20060701
  Serious: Yes (Death)
  Sender: FDA-Public Use
  Company Number: 2006010369

PATIENT
  Sex: Male
  Weight: 2.845 kg

DRUGS (4)
  1. VIRACEPT [Suspect]
     Indication: HIV INFECTION
     Dosage: 2500 MG, ORAL
     Route: 048
     Dates: start: 20041222, end: 20050210
  2. COMBIVIR [Suspect]
     Indication: HIV INFECTION
     Dosage: ORAL
     Route: 048
     Dates: start: 20040928, end: 20041222
  3. EPIVIR [Suspect]
     Indication: HIV INFECTION
     Dosage: 300 MG, ORAL
     Route: 048
     Dates: start: 20041222, end: 20050210
  4. ZIAGEN [Suspect]
     Indication: HIV INFECTION
     Dosage: 600 MG, ORAL
     Route: 048
     Dates: start: 20041222, end: 20050210

REACTIONS (3)
  - BETA HAEMOLYTIC STREPTOCOCCAL INFECTION [None]
  - DRUG EXPOSURE DURING PREGNANCY [None]
  - FOETAL CARDIAC DISORDER [None]
